FAERS Safety Report 6416121-8 (Version None)
Quarter: 2009Q4

REPORT INFORMATION
  Report Type: 
  Country: None (occurrence: None)
  Receive Date: 20091023
  Receipt Date: 20091015
  Transmission Date: 20100525
  Serious: Yes (Hospitalization)
  Sender: FDA-Public Use
  Company Number: 1000009486

PATIENT
  Age: 64 Year
  Sex: Female

DRUGS (10)
  1. SAVELLA [Suspect]
     Indication: FIBROMYALGIA
     Dosage: 12.5 MG (12.5 MG, 1 IN 1 D), ORAL; 25 MG (12.5 MG, 2 IN 1 D), ORAL
     Route: 048
     Dates: start: 20090819, end: 20090820
  2. SAVELLA [Suspect]
     Indication: FIBROMYALGIA
     Dosage: 12.5 MG (12.5 MG, 1 IN 1 D), ORAL; 25 MG (12.5 MG, 2 IN 1 D), ORAL
     Route: 048
     Dates: start: 20090821, end: 20090824
  3. SAVELLA [Suspect]
     Indication: FIBROMYALGIA
     Dosage: 50 MG (25 MG, 2 IN 1 D), ORAL
     Route: 048
     Dates: start: 20090825, end: 20090830
  4. VASOTEC [Concomitant]
  5. CRESTOR [Concomitant]
  6. PREVACID [Concomitant]
  7. PREMARIN [Concomitant]
  8. PROVERA [Concomitant]
  9. CALCIUM [Concomitant]
  10. MAGNESIUM [Concomitant]

REACTIONS (2)
  - SUPRAVENTRICULAR TACHYCARDIA [None]
  - VENTRICULAR EXTRASYSTOLES [None]
